FAERS Safety Report 6740069-2 (Version None)
Quarter: 2010Q2

REPORT INFORMATION
  Report Type: 
  Country: None (occurrence: None)
  Receive Date: 20100525
  Receipt Date: 20100216
  Transmission Date: 20101027
  Serious: No
  Sender: FDA-Public Use
  Company Number: A0844729A

PATIENT
  Age: 38 Year
  Sex: Male

DRUGS (4)
  1. BACTROBAN [Suspect]
     Indication: DRUG USE FOR UNKNOWN INDICATION
     Dosage: 1APP THREE TIMES PER DAY
     Route: 061
     Dates: start: 20040101
  2. MUPIROCIN [Suspect]
     Indication: DRUG USE FOR UNKNOWN INDICATION
     Route: 061
  3. NEXIUM [Concomitant]
  4. EFFEXOR [Concomitant]

REACTIONS (2)
  - OROPHARYNGEAL PAIN [None]
  - PRODUCT QUALITY ISSUE [None]
